FAERS Safety Report 4964457-X (Version None)
Quarter: 2006Q2

REPORT INFORMATION
  Report Type: 
  Country: None (occurrence: None)
  Receive Date: 20060406
  Receipt Date: 20060117
  Transmission Date: 20061013
  Serious: Yes (Hospitalization)
  Sender: FDA-Public Use
  Company Number: CA-SOLVAY-00306000441

PATIENT
  Age: 65 Year
  Sex: Male
  Weight: 88 kg

DRUGS (1)
  1. ANDROGEL 5.0 G [Suspect]
     Indication: ANDROGEN DEFICIENCY
     Dosage: DAILY DOSE: 5 GRAM(S)
     Route: 061

REACTIONS (1)
  - PULMONARY EMBOLISM [None]
